FAERS Safety Report 7187080-8 (Version None)
Quarter: 2010Q4

REPORT INFORMATION
  Report Type: 
  Country: None (occurrence: None)
  Receive Date: 20101222
  Receipt Date: 20101207
  Transmission Date: 20110411
  Serious: No
  Sender: FDA-Public Use
  Company Number: US-B.I. PHARMACEUTICALS,INC./RIDGEFIELD-2010-BP-14034BP

PATIENT
  Sex: Male

DRUGS (7)
  1. SPIRIVA [Suspect]
     Indication: BRONCHIECTASIS
     Dosage: 18 MCG
     Route: 055
     Dates: start: 20080101
  2. ALBUTEROL/IPRATROPIUM NEB [Suspect]
     Indication: BRONCHIECTASIS
  3. FORADIL [Concomitant]
     Indication: BRONCHIECTASIS
  4. ASMANEX TWISTHALER [Concomitant]
     Indication: BRONCHIECTASIS
  5. SINGULAIR [Concomitant]
     Indication: BRONCHIECTASIS
  6. PRAVASTATIN [Concomitant]
     Indication: BLOOD CHOLESTEROL INCREASED
  7. LOSARTAN [Concomitant]
     Indication: HYPERTENSION

REACTIONS (10)
  - AGITATION [None]
  - ANXIETY [None]
  - DEPRESSION [None]
  - HALO VISION [None]
  - HEADACHE [None]
  - HYPOAESTHESIA [None]
  - NERVOUSNESS [None]
  - PARAESTHESIA [None]
  - VISION BLURRED [None]
  - VISUAL IMPAIRMENT [None]
